FAERS Safety Report 9352149 (Version 1)
Quarter: 2013Q2

REPORT INFORMATION
  Report Type: Spontaneous
  Country: DE (occurrence: DE)
  Receive Date: 20130617
  Receipt Date: 20130617
  Transmission Date: 20140414
  Serious: Yes (Life-Threatening, Disabling)
  Sender: FDA-Public Use
  Company Number: DE-TEVA-410258GER

PATIENT
  Age: 73 Year
  Sex: Female
  Weight: 62 kg

DRUGS (3)
  1. EPIRUBICIN [Suspect]
     Indication: BREAST CANCER
     Dates: start: 20050419, end: 20051007
  2. FLUOROURACIL [Suspect]
     Indication: BREAST CANCER
     Dates: start: 20050419, end: 20051007
  3. CYCLOPHOSPHAMID [Suspect]
     Indication: BREAST CANCER
     Dates: start: 20050419, end: 20051007

REACTIONS (1)
  - Chronic myelomonocytic leukaemia [Recovered/Resolved with Sequelae]
